FAERS Safety Report 8024112-9 (Version None)
Quarter: 2012Q1

REPORT INFORMATION
  Report Type: 
  Country: None (occurrence: None)
  Receive Date: 20120105
  Receipt Date: 20120101
  Transmission Date: 20120608
  Serious: No
  Sender: FDA-Public Use
  Company Number: US-TEVA-315883USA

PATIENT
  Sex: Female
  Weight: 61.29 kg

DRUGS (4)
  1. KEPPRA [Concomitant]
     Indication: CONVULSION
     Dosage: 1500 MILLIGRAM;
     Route: 048
     Dates: start: 20110101
  2. ZONEGRAN [Concomitant]
     Indication: CONVULSION
     Route: 048
     Dates: start: 20110101
  3. PLAN B ONE-STEP [Suspect]
     Indication: POST COITAL CONTRACEPTION
     Dosage: 1.5 MILLIGRAM;
     Route: 048
     Dates: start: 20120101, end: 20120101
  4. IMITREX [Concomitant]
     Indication: MIGRAINE
     Route: 048

REACTIONS (1)
  - VOMITING [None]
